FAERS Safety Report 14081226 (Version 1)
Quarter: 2017Q4

REPORT INFORMATION
  Report Type: Spontaneous
  Country: DE (occurrence: DE)
  Receive Date: 20171012
  Receipt Date: 20171012
  Transmission Date: 20180321
  Serious: Yes (Congenital Anomaly, Other)
  Sender: FDA-Public Use
  Company Number: DE-MYLANLABS-2017M1062970

PATIENT
  Age: 1 Day
  Sex: Male
  Weight: 2.6 kg

DRUGS (6)
  1. AZATHIOPRINE. [Suspect]
     Active Substance: AZATHIOPRINE
     Indication: CROHN^S DISEASE
     Dosage: 150 [MG/D ]
     Route: 064
     Dates: start: 20160529, end: 20170101
  2. MONURIL [Concomitant]
     Active Substance: FOSFOMYCIN SODIUM
     Indication: URINARY TRACT INFECTION
     Route: 064
  3. INFLIXIMAB [Suspect]
     Active Substance: INFLIXIMAB
     Indication: CROHN^S DISEASE
     Dosage: 300 [MG/4WK ]
     Route: 064
     Dates: start: 20160529, end: 20161101
  4. VAXIGRIP [Concomitant]
     Active Substance: INFLUENZA VIRUS VACCINE
     Indication: IMMUNISATION
     Route: 064
     Dates: start: 20161013, end: 20161013
  5. FERINJECT [Concomitant]
     Active Substance: FERRIC CARBOXYMALTOSE
     Indication: IRON DEFICIENCY
     Dosage: 50 [MG/D ]
     Route: 064
     Dates: start: 20161129, end: 20161129
  6. FOLIO FORTE [Concomitant]
     Active Substance: FOLIC ACID\VITAMINS
     Indication: PROPHYLAXIS OF NEURAL TUBE DEFECT
     Dosage: 0.8 [MG/D (BIS 0.4) ]
     Route: 064
     Dates: start: 20160529, end: 20160811

REACTIONS (5)
  - Atrial septal defect [Not Recovered/Not Resolved]
  - Foetal exposure during pregnancy [Recovered/Resolved]
  - Hepatic cyst [Not Recovered/Not Resolved]
  - Premature baby [Recovering/Resolving]
  - Cardiac aneurysm [Not Recovered/Not Resolved]

NARRATIVE: CASE EVENT DATE: 20170101
